FAERS Safety Report 9515377 (Version 2)
Quarter: 2013Q3

REPORT INFORMATION
  Report Type: Report from Study
  Country: FR (occurrence: FR)
  Receive Date: 20130911
  Receipt Date: 20130911
  Transmission Date: 20140515
  Serious: Yes (Other)
  Sender: FDA-Public Use
  Company Number: PHHO2012FR012089

PATIENT
  Sex: 0

DRUGS (4)
  1. SOM230 [Suspect]
     Indication: PITUITARY-DEPENDENT CUSHING^S SYNDROME
     Dosage: DOSE BLINDED
     Route: 030
     Dates: start: 20120416, end: 20120718
  2. SOM230 [Suspect]
     Dosage: DOSE BLINDED
     Route: 030
     Dates: start: 20120816
  3. TANGANIL [Concomitant]
     Indication: VERTIGO
     Dosage: 1000 MG, UNK
     Dates: start: 20120810
  4. JANUVIA [Concomitant]
     Indication: DIABETES MELLITUS
     Dosage: 100 MG, UNK
     Dates: start: 20120718, end: 20120808

REACTIONS (1)
  - Gamma-glutamyltransferase increased [Recovered/Resolved]
